FAERS Safety Report 8226667-8 (Version None)
Quarter: 2012Q1

REPORT INFORMATION
  Report Type: 
  Country: None (occurrence: None)
  Receive Date: 20120322
  Receipt Date: 20120319
  Transmission Date: 20120608
  Serious: Yes (Hospitalization)
  Sender: FDA-Public Use
  Company Number: GB-SP-2012-01435

PATIENT
  Sex: Male

DRUGS (5)
  1. TIMOLOL MALEATE [Concomitant]
     Route: 050
  2. ACETAMINOPHEN [Concomitant]
     Route: 048
  3. TRAVOPROST [Concomitant]
     Route: 050
  4. IMMUCYST [Suspect]
     Indication: CARCINOMA IN SITU
     Route: 065
  5. LOSARTAN POTASSIUM [Concomitant]
     Route: 048

REACTIONS (11)
  - BOVINE TUBERCULOSIS [None]
  - HAEMATEMESIS [None]
  - PRURITUS [None]
  - COUGH [None]
  - NIGHT SWEATS [None]
  - SEPTIC SHOCK [None]
  - HISTIOCYTOSIS HAEMATOPHAGIC [None]
  - ALOPECIA [None]
  - DUODENAL ULCER [None]
  - DERMATOPHYTOSIS [None]
  - PYREXIA [None]
